FAERS Safety Report 25166453 (Version 1)
Quarter: 2025Q2

REPORT INFORMATION
  Report Type: Spontaneous
  Country: PL (occurrence: PL)
  Receive Date: 20250407
  Receipt Date: 20250407
  Transmission Date: 20250717
  Serious: Yes (Other)
  Sender: BRISTOL MYERS SQUIBB
  Company Number: PL-BRISTOL-MYERS SQUIBB COMPANY-2025-043514

PATIENT
  Age: 58 Year
  Sex: Male

DRUGS (3)
  1. OPDIVO [Suspect]
     Active Substance: NIVOLUMAB
     Indication: Squamous cell carcinoma
     Dates: start: 20240820, end: 20241203
  2. OPDIVO [Suspect]
     Active Substance: NIVOLUMAB
     Dates: start: 20250121
  3. YERVOY [Suspect]
     Active Substance: IPILIMUMAB
     Indication: Squamous cell carcinoma
     Dates: start: 20240820, end: 20241203

REACTIONS (4)
  - Pneumonia viral [Unknown]
  - Cardiac failure [Unknown]
  - Atrial fibrillation [Unknown]
  - Pneumonia [Unknown]
